FAERS Safety Report 10026953 (Version 2)
Quarter: 2014Q2

REPORT INFORMATION
  Report Type: Spontaneous
  Country: IT (occurrence: None)
  Receive Date: 20140318
  Receipt Date: 20140404
  Transmission Date: 20141212
  Serious: Yes (Life-Threatening)
  Sender: FDA-Public Use
  Company Number: IT-20140030

PATIENT
  Age: 73 Year
  Sex: Female

DRUGS (1)
  1. GADOTERIC ACID [Suspect]
     Indication: NUCLEAR MAGNETIC RESONANCE IMAGING
     Dosage: 11 ML, 1 IN1 D (NOT OTHERWISE SPECIFIED)
     Route: 042
     Dates: start: 20140228, end: 20140228

REACTIONS (4)
  - Dyspnoea [None]
  - Erythema [None]
  - Face oedema [None]
  - Pruritus generalised [None]
